FAERS Safety Report 8445402-1 (Version None)
Quarter: 2012Q2

REPORT INFORMATION
  Report Type: 
  Country: None (occurrence: None)
  Receive Date: 20120618
  Receipt Date: 20120111
  Transmission Date: 20120825
  Serious: Yes (Hospitalization)
  Sender: FDA-Public Use
  Company Number: US-TEVA-317138USA

PATIENT
  Sex: Female

DRUGS (7)
  1. ONDANSETRON [Concomitant]
     Indication: NAUSEA
     Dates: start: 20090101
  2. FENTANYL [Concomitant]
     Route: 062
     Dates: start: 20120109
  3. FENTANYL [Concomitant]
     Indication: PAIN
     Route: 062
     Dates: start: 20110401, end: 20111101
  4. LORAZEPAM [Concomitant]
     Indication: ANXIETY
     Dates: start: 20090101
  5. FENTANYL [Concomitant]
     Route: 062
     Dates: start: 20111101, end: 20120109
  6. FENTORA [Suspect]
     Indication: BREAKTHROUGH PAIN
     Dosage: 600 MICROGRAM;
     Route: 002
     Dates: start: 20110401, end: 20120107
  7. HYDROMORPHONE HYDROCHLORIDE [Concomitant]
     Indication: BREAKTHROUGH PAIN
     Route: 042

REACTIONS (5)
  - DRUG INEFFECTIVE [None]
  - TUMOUR PAIN [None]
  - PAIN [None]
  - NEOPLASM [None]
  - URINARY TRACT INFECTION [None]
